FAERS Safety Report 20775172 (Version 8)
Quarter: 2022Q2

REPORT INFORMATION
  Report Type: Report from Study
  Country: CA (occurrence: CA)
  Receive Date: 20220502
  Receipt Date: 20220628
  Transmission Date: 20220721
  Serious: Yes (Other)
  Sender: FDA-Public Use
  Company Number: CA-GILEAD-2022-0567858

PATIENT
  Age: 43 Year
  Sex: Female
  Weight: 66 kg

DRUGS (7)
  1. SACITUZUMAB GOVITECAN [Suspect]
     Active Substance: SACITUZUMAB GOVITECAN
     Indication: Triple negative breast cancer
     Dosage: 495 MG
     Route: 042
  2. SACITUZUMAB GOVITECAN [Suspect]
     Active Substance: SACITUZUMAB GOVITECAN
     Dosage: 660MG
     Route: 042
     Dates: start: 20220107
  3. SACITUZUMAB GOVITECAN [Suspect]
     Active Substance: SACITUZUMAB GOVITECAN
     Dosage: 720 MG C7 D1 AND D8
     Route: 042
     Dates: start: 20220513, end: 20220527
  4. ZOMETA [Concomitant]
     Active Substance: ZOLEDRONIC ACID
  5. DIPHENHYDRAMINE [Concomitant]
     Active Substance: DIPHENHYDRAMINE
     Dosage: 25 MG PIV (PRE-MEDICATION PRIOR TO TRODELVY)
  6. DIPHENHYDRAMINE [Concomitant]
     Active Substance: DIPHENHYDRAMINE
     Dosage: 25 MG IV (PRE-MEDICATION PRIOR TO TRODELVY)
     Route: 042
  7. DIPHENHYDRAMINE [Concomitant]
     Active Substance: DIPHENHYDRAMINE
     Dosage: 25 MG PO (PRE-MEDICATION PRIOR TO TRODELVY)

REACTIONS (29)
  - Disease progression [Not Recovered/Not Resolved]
  - Cognitive disorder [Not Recovered/Not Resolved]
  - Alopecia [Not Recovered/Not Resolved]
  - Weight decreased [Unknown]
  - Heart rate increased [Unknown]
  - Weight fluctuation [Unknown]
  - Localised infection [Recovered/Resolved]
  - Weight increased [Unknown]
  - Infection [Unknown]
  - Wound [Not Recovered/Not Resolved]
  - Skin infection [Unknown]
  - Weight increased [Unknown]
  - Wound [Unknown]
  - Ill-defined disorder [Unknown]
  - Immune system disorder [Unknown]
  - Diarrhoea [Recovering/Resolving]
  - Wound infection [Not Recovered/Not Resolved]
  - Hypotension [Unknown]
  - Rash pustular [Not Recovered/Not Resolved]
  - Hypotension [Unknown]
  - Fatigue [Unknown]
  - Localised infection [Not Recovered/Not Resolved]
  - Weight decreased [Unknown]
  - SARS-CoV-2 test positive [Recovered/Resolved]
  - COVID-19 [Recovered/Resolved]
  - Somnolence [Unknown]
  - Weight increased [Unknown]
  - Inappropriate schedule of product administration [Recovered/Resolved]
  - Inappropriate schedule of product administration [Recovered/Resolved]

NARRATIVE: CASE EVENT DATE: 20220120
